FAERS Safety Report 5008001-X (Version None)
Quarter: 2006Q2

REPORT INFORMATION
  Report Type: 
  Country: None (occurrence: None)
  Receive Date: 20060404
  Receipt Date: 20050512
  Transmission Date: 20061013
  Serious: Yes (Other)
  Sender: FDA-Public Use
  Company Number: 2005066200

PATIENT
  Age: 29 Year
  Sex: Male
  Weight: 95.2554 kg

DRUGS (2)
  1. GEODON [Suspect]
     Indication: ABNORMAL BEHAVIOUR
     Dosage: 80 MG (40 MG, 2 IN 1 D), ORAL
     Route: 048
  2. ALL OTHER THERAPEUTIC PRODUCTS (ALL OTHER THERAPEUTIC PRODUCTS) [Concomitant]

REACTIONS (1)
  - EOSINOPHILIA [None]
